FAERS Safety Report 21450909 (Version 1)
Quarter: 2022Q4

REPORT INFORMATION
  Report Type: Spontaneous
  Country: SG (occurrence: None)
  Receive Date: 20221013
  Receipt Date: 20221013
  Transmission Date: 20230113
  Serious: Yes (Other)
  Sender: FDA-Public Use
  Company Number: 2022A333963

PATIENT
  Age: 826 Month
  Sex: Female
  Weight: 77.5 kg

DRUGS (2)
  1. SYMBICORT [Suspect]
     Active Substance: BUDESONIDE\FORMOTEROL FUMARATE DIHYDRATE
     Indication: Asthma
     Dosage: 160/4.5 UG/INHALATION, AS REQUIRED. 2 BID AS REQUIRED
     Route: 055
     Dates: start: 202207
  2. SYMBICORT [Suspect]
     Active Substance: BUDESONIDE\FORMOTEROL FUMARATE DIHYDRATE
     Indication: Asthma
     Dosage: 160/4.5 UG/INHALATION, AS REQUIRED160.45UG/INHAL AS REQUIRED160.45UG/INHAL TWO TIMES A DAY
     Route: 055
     Dates: end: 20220922

REACTIONS (3)
  - Drug effect less than expected [Recovered/Resolved]
  - Asthma [Unknown]
  - Device malfunction [Recovered/Resolved]

NARRATIVE: CASE EVENT DATE: 20220701
